FAERS Safety Report 12088334 (Version 1)
Quarter: 2016Q1

REPORT INFORMATION
  Report Type: Spontaneous
  Country: US (occurrence: US)
  Receive Date: 20160218
  Receipt Date: 20160218
  Transmission Date: 20160526
  Serious: Yes (Hospitalization)
  Sender: FDA-Public Use
  Company Number: US-BEH-2016058729

PATIENT
  Age: 60 Year
  Sex: Female
  Weight: 90 kg

DRUGS (38)
  1. HIZENTRA [Suspect]
     Active Substance: HUMAN IMMUNOGLOBULIN G
     Route: 058
  2. POLYSPORIN FIRST AID ANTIBIOTIC [Concomitant]
     Active Substance: BACITRACIN\POLYMYXIN B SULFATE
  3. DOXYCYCLINE. [Concomitant]
     Active Substance: DOXYCYCLINE
  4. TYLENOL [Concomitant]
     Active Substance: ACETAMINOPHEN
  5. LASIX [Concomitant]
     Active Substance: FUROSEMIDE
  6. DIPHENHYDRAMINE. [Concomitant]
     Active Substance: DIPHENHYDRAMINE
  7. RANITIDINE [Concomitant]
     Active Substance: RANITIDINE\RANITIDINE HYDROCHLORIDE
  8. XANAX [Concomitant]
     Active Substance: ALPRAZOLAM
  9. KLOR-CON [Concomitant]
     Active Substance: POTASSIUM CHLORIDE
  10. ENTOCORT [Concomitant]
     Active Substance: BUDESONIDE
  11. TYLENOL WITH CODEINE #4 [Concomitant]
  12. PAXIL [Concomitant]
     Active Substance: PAROXETINE HYDROCHLORIDE
  13. ALBUTEROL. [Concomitant]
     Active Substance: ALBUTEROL
  14. LAMICTAL [Concomitant]
     Active Substance: LAMOTRIGINE
  15. EPIPEN [Concomitant]
     Active Substance: EPINEPHRINE
  16. PERCOCET [Concomitant]
     Active Substance: ACETAMINOPHEN\OXYCODONE HYDROCHLORIDE
  17. HCTZ [Concomitant]
     Active Substance: HYDROCHLOROTHIAZIDE
  18. ALEVE [Concomitant]
     Active Substance: NAPROXEN SODIUM
  19. TRILEPTAL [Concomitant]
     Active Substance: OXCARBAZEPINE
  20. MAXALT [Concomitant]
     Active Substance: RIZATRIPTAN BENZOATE
  21. PREDNISONE. [Concomitant]
     Active Substance: PREDNISONE
  22. HIZENTRA [Suspect]
     Active Substance: HUMAN IMMUNOGLOBULIN G
     Indication: HYPOGAMMAGLOBULINAEMIA
     Route: 058
  23. L-M-X [Concomitant]
  24. METOPROLOL SUCCINATE. [Concomitant]
     Active Substance: METOPROLOL SUCCINATE
  25. TOPAMAX [Concomitant]
     Active Substance: TOPIRAMATE
  26. PATANSE [Concomitant]
  27. HYDROCORTISONE. [Concomitant]
     Active Substance: HYDROCORTISONE
  28. SINGULAIR [Concomitant]
     Active Substance: MONTELUKAST SODIUM
  29. PRILOSEC [Concomitant]
     Active Substance: OMEPRAZOLE MAGNESIUM
  30. DIOVAN [Concomitant]
     Active Substance: VALSARTAN
  31. LOVENOX [Concomitant]
     Active Substance: ENOXAPARIN SODIUM
  32. THEO-DUR [Concomitant]
     Active Substance: THEOPHYLLINE ANHYDROUS
  33. VERAPAMIL [Concomitant]
     Active Substance: VERAPAMIL HYDROCHLORIDE
  34. ZOMIG [Concomitant]
     Active Substance: ZOLMITRIPTAN
  35. FLUTICASONE [Concomitant]
     Active Substance: FLUTICASONE\FLUTICASONE PROPIONATE
  36. AMLODIPINE [Concomitant]
     Active Substance: AMLODIPINE BESYLATE
  37. METOCLOPRAMIDE. [Concomitant]
     Active Substance: METOCLOPRAMIDE
  38. ADVAIR HFA [Concomitant]
     Active Substance: FLUTICASONE PROPIONATE\SALMETEROL XINAFOATE

REACTIONS (1)
  - Asthma [Unknown]

NARRATIVE: CASE EVENT DATE: 20160201
